FAERS Safety Report 7436249-3 (Version None)
Quarter: 2011Q2

REPORT INFORMATION
  Report Type: 
  Country: None (occurrence: None)
  Receive Date: 20110425
  Receipt Date: 20110421
  Transmission Date: 20111010
  Serious: Yes (Hospitalization, Other)
  Sender: FDA-Public Use
  Company Number: NL-BRISTOL-MYERS SQUIBB COMPANY-15669542

PATIENT
  Age: 57 Year
  Sex: Male

DRUGS (5)
  1. CAPECITABINE [Suspect]
     Indication: METASTATIC GASTRIC CANCER
     Dosage: INTD ON 12APR11,05APR11-12APR11,15APR11-UNK
     Route: 048
     Dates: start: 20110405
  2. PRIMPERAN TAB [Concomitant]
     Dates: start: 20110405
  3. CISPLATIN [Suspect]
     Indication: METASTATIC GASTRIC CANCER
     Route: 042
     Dates: start: 20110405, end: 20110405
  4. ONDANSETRON [Concomitant]
     Dates: start: 20110405
  5. BMS833923 [Suspect]
     Indication: METASTATIC GASTRIC CANCER
     Dosage: INTD ON 12APR11,22MAR11-12APR11,15APR11-UNK
     Route: 048
     Dates: start: 20110322

REACTIONS (2)
  - NAUSEA [None]
  - LIPASE INCREASED [None]
